FAERS Safety Report 6255999-8 (Version None)
Quarter: 2009Q3

REPORT INFORMATION
  Report Type: 
  Country: None (occurrence: None)
  Receive Date: 20090706
  Receipt Date: 20090704
  Transmission Date: 20100115
  Serious: Yes (Other)
  Sender: FDA-Public Use
  Company Number: US-PFIZER INC-2009202200

PATIENT
  Sex: Female
  Weight: 52.163 kg

DRUGS (5)
  1. CLEOCIN [Suspect]
     Indication: STAPHYLOCOCCAL INFECTION
     Dosage: FREQUENCY: EVERY DAY;
     Route: 048
     Dates: start: 20090416
  2. LIPITOR [Concomitant]
  3. HUMALOG [Concomitant]
  4. FOSAMAX [Concomitant]
  5. ORTHO-NOVUM [Concomitant]

REACTIONS (1)
  - BLOOD GLUCOSE INCREASED [None]
